FAERS Safety Report 7315998-1 (Version None)
Quarter: 2011Q1

REPORT INFORMATION
  Report Type: 
  Country: None (occurrence: None)
  Receive Date: 20110225
  Receipt Date: 20110215
  Transmission Date: 20110831
  Serious: Yes (Hospitalization, Other)
  Sender: FDA-Public Use
  Company Number: PHHY2011BR12299

PATIENT
  Sex: Male

DRUGS (9)
  1. NOSINE [Concomitant]
     Dosage: 5 DF, QD
     Dates: start: 20110101
  2. EXELON [Suspect]
     Indication: DEMENTIA ALZHEIMER'S TYPE
     Dosage: 9.5 MG, UNK
     Route: 062
  3. DIGESAN [Concomitant]
     Dosage: 3 DF, UNK
     Dates: start: 20110101
  4. TRENTAL [Concomitant]
     Dosage: 2 DF, QD
     Dates: start: 20110101
  5. BACLON [Concomitant]
     Dosage: 2 DF, QD
  6. ADVIL [Concomitant]
     Dosage: 2 DF, QD
     Dates: start: 20110101
  7. HALDOL [Concomitant]
     Dosage: 1 DF, QD
     Dates: start: 20110101
  8. EXELON [Suspect]
     Indication: DEMENTIA
     Dosage: 4.6 MG, UNK
     Route: 062
     Dates: start: 20101001
  9. OMEPRAZOLE [Concomitant]
     Dosage: 1 DF, QD
     Dates: start: 20110101

REACTIONS (6)
  - DYSPNOEA [None]
  - ASPIRATION BRONCHIAL [None]
  - DEMENTIA ALZHEIMER'S TYPE [None]
  - DYSPHAGIA [None]
  - PNEUMONIA ASPIRATION [None]
  - PYREXIA [None]
